FAERS Safety Report 8621651-4 (Version None)
Quarter: 2012Q3

REPORT INFORMATION
  Report Type: 
  Country: None (occurrence: None)
  Receive Date: 20120820
  Receipt Date: 20120820
  Transmission Date: 20120928
  Serious: No
  Sender: FDA-Public Use
  Company Number: None

PATIENT
  Sex: Female
  Weight: 83.9154 kg

DRUGS (2)
  1. ENOXAPARIN [Suspect]
     Indication: ATRIAL FIBRILLATION
     Dosage: 80 MG, BID, SQ
     Dates: start: 20120809, end: 20120812
  2. ENOXAPARIN [Suspect]
     Dosage: 80MG, BID, SQ
     Dates: start: 20120812, end: 20120816

REACTIONS (3)
  - THROMBOSIS [None]
  - PRODUCT SUBSTITUTION ISSUE [None]
  - GINGIVAL BLEEDING [None]
